FAERS Safety Report 6401589-3 (Version None)
Quarter: 2009Q4

REPORT INFORMATION
  Report Type: 
  Country: None (occurrence: None)
  Receive Date: 20091009
  Receipt Date: 20091009
  Transmission Date: 20100525
  Serious: Yes (Hospitalization, Other)
  Sender: FDA-Public Use
  Company Number: None

PATIENT
  Sex: Male
  Weight: 74.8435 kg

DRUGS (1)
  1. FLOMAX [Suspect]
     Indication: URINE FLOW DECREASED
     Dosage: 4M  / 8M
     Dates: start: 20090508, end: 20090613

REACTIONS (9)
  - DRUG TOXICITY [None]
  - GASTRIC DISORDER [None]
  - GASTROINTESTINAL DISORDER [None]
  - GASTROINTESTINAL OEDEMA [None]
  - GROIN PAIN [None]
  - MUSCLE INJURY [None]
  - PARAESTHESIA [None]
  - SWELLING [None]
  - URINARY RETENTION [None]
